FAERS Safety Report 14803143 (Version 1)
Quarter: 2018Q2

REPORT INFORMATION
  Report Type: Spontaneous
  Country: GB (occurrence: GB)
  Receive Date: 20180425
  Receipt Date: 20180425
  Transmission Date: 20180711
  Serious: Yes (Hospitalization)
  Sender: FDA-Public Use
  Company Number: GB-CIPLA LTD.-2018GB16506

PATIENT

DRUGS (2)
  1. OMEPRAZOLE. [Concomitant]
     Active Substance: OMEPRAZOLE
     Indication: PRODUCT USED FOR UNKNOWN INDICATION
     Dosage: UNK
     Route: 065
  2. AMLODIPINE [Suspect]
     Active Substance: AMLODIPINE BESYLATE
     Indication: ESSENTIAL HYPERTENSION
     Dosage: 1 DF, DAILY
     Route: 048
     Dates: start: 20180207

REACTIONS (8)
  - Balance disorder [Unknown]
  - Tremor [Unknown]
  - Palpitations [Unknown]
  - Hypersensitivity [Recovered/Resolved]
  - Headache [Unknown]
  - Syncope [Unknown]
  - Diplopia [Unknown]
  - Flushing [Unknown]
